FAERS Safety Report 17186150 (Version 3)
Quarter: 2020Q4

REPORT INFORMATION
  Report Type: Report from Study
  Country: US (occurrence: US)
  Receive Date: 20191220
  Receipt Date: 20201104
  Transmission Date: 20210113
  Serious: Yes (Other)
  Sender: FDA-Public Use
  Company Number: NVSC2019US073471

PATIENT
  Age: 24 Year
  Sex: Male

DRUGS (4)
  1. CYCLOPHOSPHAMIDE. [Concomitant]
     Active Substance: CYCLOPHOSPHAMIDE
     Indication: CHEMOTHERAPY
     Route: 065
  2. KYMRIAH [Suspect]
     Active Substance: TISAGENLECLEUCEL
     Indication: B-CELL TYPE ACUTE LEUKAEMIA
     Dosage: UNK, ONCE/SINGLE
     Route: 041
     Dates: start: 20190515
  3. RITUXAN [Concomitant]
     Active Substance: RITUXIMAB
     Indication: PRODUCT USED FOR UNKNOWN INDICATION
     Route: 065
  4. FLUDARABINE [Concomitant]
     Active Substance: FLUDARABINE PHOSPHATE
     Indication: CHEMOTHERAPY
     Route: 065

REACTIONS (10)
  - Haemoglobin decreased [Unknown]
  - Platelet count decreased [Unknown]
  - Fungal infection [Unknown]
  - Cytopenia [Unknown]
  - Minimal residual disease [Unknown]
  - Cellulitis [Unknown]
  - Malignant neoplasm progression [Unknown]
  - Haematocrit decreased [Unknown]
  - B-cell type acute leukaemia [Unknown]
  - Lymphocyte count decreased [Unknown]
